FAERS Safety Report 8588854-9 (Version None)
Quarter: 2012Q3

REPORT INFORMATION
  Report Type: 
  Country: None (occurrence: None)
  Receive Date: 20120813
  Receipt Date: 20120803
  Transmission Date: 20120928
  Serious: Yes (Hospitalization, Other)
  Sender: FDA-Public Use
  Company Number: US-PFIZER INC-2012195435

PATIENT
  Age: 47 Year
  Sex: Female

DRUGS (12)
  1. PREDNISONE [Concomitant]
     Indication: PRODUCT USED FOR UNKNOWN INDICATION
     Dosage: 10 MG AS REQUIRED
  2. EFFEXOR [Concomitant]
     Indication: PRODUCT USED FOR UNKNOWN INDICATION
     Dosage: UNK
  3. IMITREX [Concomitant]
     Indication: PRODUCT USED FOR UNKNOWN INDICATION
     Dosage: UNK, OCCASIONAL
  4. ZOLOFT [Concomitant]
     Indication: PRODUCT USED FOR UNKNOWN INDICATION
     Dosage: UNK
  5. XANAX [Suspect]
     Indication: ANXIETY
     Dosage: 2 MG, 3X/DAY
  6. NEURONTIN [Concomitant]
     Indication: PRODUCT USED FOR UNKNOWN INDICATION
     Dosage: UNK
  7. SYNTHROID [Concomitant]
     Indication: HYPOTHYROIDISM
     Dosage: 0.5 MG, 1X/DAY
  8. CINRYZE [Suspect]
     Indication: HEREDITARY ANGIOEDEMA
     Dosage: 1000 UNITS, 2X/WEEK
     Route: 042
     Dates: start: 20120201
  9. CLARITIN [Concomitant]
     Indication: PRODUCT USED FOR UNKNOWN INDICATION
     Dosage: UNK
  10. REMERON [Concomitant]
     Indication: PRODUCT USED FOR UNKNOWN INDICATION
     Dosage: UNK
  11. KEPPRA [Concomitant]
     Indication: PRODUCT USED FOR UNKNOWN INDICATION
     Dosage: UNK
  12. FIORICET [Concomitant]
     Indication: PRODUCT USED FOR UNKNOWN INDICATION
     Dosage: UNK

REACTIONS (10)
  - INAPPROPRIATE SCHEDULE OF DRUG ADMINISTRATION [None]
  - ENTEROCOCCAL INFECTION [None]
  - BACK PAIN [None]
  - DEVICE RELATED INFECTION [None]
  - HEREDITARY ANGIOEDEMA [None]
  - ANGIOEDEMA [None]
  - CENTRAL VENOUS CATHETERISATION [None]
  - DRUG DEPENDENCE [None]
  - MEDICAL DEVICE COMPLICATION [None]
  - CATHETER SITE PAIN [None]
